FAERS Safety Report 22228210 (Version 1)
Quarter: 2023Q2

REPORT INFORMATION
  Report Type: Spontaneous
  Country: US (occurrence: None)
  Receive Date: 20230418
  Receipt Date: 20230418
  Transmission Date: 20230721
  Serious: Yes (Death)
  Sender: FDA-Public Use
  Company Number: None

PATIENT
  Age: 15 Year
  Sex: Male
  Weight: 53.1 kg

DRUGS (1)
  1. DUPIXENT [Suspect]
     Active Substance: DUPILUMAB
     Indication: Eosinophilic oesophagitis
     Dosage: OTHER FREQUENCY : INJECTION BIWEEKLY;?
     Route: 030
     Dates: start: 20220801, end: 20221127

REACTIONS (3)
  - Eye pain [None]
  - Abdominal pain upper [None]
  - Completed suicide [None]

NARRATIVE: CASE EVENT DATE: 20221128
